FAERS Safety Report 12595696 (Version 2)
Quarter: 2016Q4

REPORT INFORMATION
  Report Type: Spontaneous
  Country: US (occurrence: US)
  Receive Date: 20160726
  Receipt Date: 20161011
  Transmission Date: 20170207
  Serious: No
  Sender: FDA-Public Use
  Company Number: US-MYLANLABS-2015M1028577

PATIENT
  Sex: Female
  Weight: 61.22 kg

DRUGS (2)
  1. NSAIDS [Interacting]
     Active Substance: UNSPECIFIED INGREDIENT
  2. SIMVASTATIN. [Suspect]
     Active Substance: SIMVASTATIN
     Indication: BLOOD CHOLESTEROL INCREASED
     Dosage: UNK
     Dates: start: 2014

REACTIONS (3)
  - Drug interaction [Recovered/Resolved]
  - Somnolence [Recovered/Resolved]
  - Limb discomfort [Recovered/Resolved]
